FAERS Safety Report 4821771-6 (Version None)
Quarter: 2005Q4

REPORT INFORMATION
  Report Type: 
  Country: None (occurrence: None)
  Receive Date: 20051107
  Receipt Date: 20051024
  Transmission Date: 20060501
  Serious: Yes (Hospitalization)
  Sender: FDA-Public Use
  Company Number: DE-AMGEN-UK155636

PATIENT
  Sex: Male

DRUGS (14)
  1. MIMPARA [Suspect]
     Indication: DRUG USE FOR UNKNOWN INDICATION
     Route: 048
     Dates: start: 20050101
  2. NEORECORMON [Concomitant]
     Route: 058
  3. INSULIN [Concomitant]
  4. ASPIRIN [Concomitant]
  5. CORVATON [Concomitant]
  6. RENAGEL [Concomitant]
  7. NEBILET [Concomitant]
  8. ISOSORBIDE DINITRATE [Concomitant]
  9. VITAMINS [Concomitant]
  10. LIQUIDEPUR [Concomitant]
     Route: 048
  11. NITROLINGUAL [Concomitant]
     Route: 045
  12. POTASSIUM [Concomitant]
  13. ROCALTROL [Concomitant]
  14. CALCIUM CARBONATE [Concomitant]

REACTIONS (2)
  - LEUKOPENIA [None]
  - THROMBOCYTOPENIA [None]
